FAERS Safety Report 6269528-6 (Version None)
Quarter: 2009Q3

REPORT INFORMATION
  Report Type: 
  Country: None (occurrence: None)
  Receive Date: 20090715
  Receipt Date: 20090430
  Transmission Date: 20100115
  Serious: Yes (Death)
  Sender: FDA-Public Use
  Company Number: US-TYCO HEALTHCARE/MALLINCKRODT-T200900961

PATIENT
  Age: 28 Year
  Sex: Male

DRUGS (6)
  1. OXYCODONE [Suspect]
     Indication: SPORTS INJURY
  2. OXYCODONE [Suspect]
     Indication: DRUG DEPENDENCE
  3. LORTAB [Suspect]
     Indication: SPORTS INJURY
  4. LORTAB [Suspect]
     Indication: DRUG DEPENDENCE
  5. ANALGESICS [Suspect]
     Indication: SPORTS INJURY
  6. ANALGESICS [Suspect]
     Indication: DRUG DEPENDENCE

REACTIONS (1)
  - MULTIPLE DRUG OVERDOSE [None]
